FAERS Safety Report 24422683 (Version 1)
Quarter: 2024Q4

REPORT INFORMATION
  Report Type: Report from Study
  Country: IN (occurrence: IN)
  Receive Date: 20241010
  Receipt Date: 20241010
  Transmission Date: 20250114
  Serious: Yes (Other)
  Sender: CIPLA
  Company Number: IN-CIPLA LTD.-2024IN11097

PATIENT

DRUGS (7)
  1. METOPROLOL SUCCINATE [Suspect]
     Active Substance: METOPROLOL SUCCINATE
     Indication: Product used for unknown indication
     Dosage: UNK, STRENGTH 25 (UNITS UNSPECIFIED)
     Route: 048
     Dates: start: 202404
  2. ECOSPRIN GOLD [Concomitant]
     Indication: Product used for unknown indication
     Dosage: UNK, STRENGTH 40 (UNITS UNSPECIFIED)
     Route: 065
  3. RANCAD [Concomitant]
     Indication: Product used for unknown indication
     Dosage: UNK, STRENGTH 500 (UNITS UNSPECIFIED)
     Route: 065
  4. ISONIT [Concomitant]
     Indication: Product used for unknown indication
     Dosage: UNK, STRENGTH 2.6 (UNITS UNSPECIFIED) (GTN)
     Route: 065
  5. ATORVASTATIN [Concomitant]
     Active Substance: ATORVASTATIN
     Indication: Product used for unknown indication
     Dosage: UNK, STRENGTH 80 (UNITS UNSPECIFIED)
     Route: 065
  6. EZEDOC [Concomitant]
     Indication: Product used for unknown indication
     Dosage: UNK, STRENGTH 10 (UNITS UNSPECIFIED)
     Route: 065
  7. ANGIPLAT [Concomitant]
     Indication: Product used for unknown indication
     Dosage: UNK, STRENGTH 2.5 (UNITS UNSPECIFIED)
     Route: 065

REACTIONS (6)
  - Breast cancer [Not Recovered/Not Resolved]
  - Ecchymosis [Recovered/Resolved]
  - Pain in extremity [Not Recovered/Not Resolved]
  - Dyspepsia [Not Recovered/Not Resolved]
  - Stress [Not Recovered/Not Resolved]
  - Arthralgia [Not Recovered/Not Resolved]

NARRATIVE: CASE EVENT DATE: 20240101
